FAERS Safety Report 4325709-X (Version None)
Quarter: 2004Q1

REPORT INFORMATION
  Report Type: 
  Country: None (occurrence: None)
  Receive Date: 20040309
  Receipt Date: 20040309
  Transmission Date: 20041129
  Serious: Yes (Death, Other)
  Sender: FDA-Public Use
  Company Number: USA040361439

PATIENT
  Sex: Female

DRUGS (1)
  1. XIGRIS [Suspect]

REACTIONS (2)
  - BRAIN OEDEMA [None]
  - HAEMORRHAGE INTRACRANIAL [None]
